FAERS Safety Report 9587561 (Version 2)
Quarter: 2013Q4

REPORT INFORMATION
  Report Type: Report from Study
  Country: AU (occurrence: AU)
  Receive Date: 20131003
  Receipt Date: 20131009
  Transmission Date: 20140711
  Serious: Yes (Death, Other)
  Sender: FDA-Public Use
  Company Number: AU-ROCHE-1284487

PATIENT
  Sex: Female

DRUGS (1)
  1. ZELBORAF [Suspect]
     Indication: PRODUCT USED FOR UNKNOWN INDICATION
     Dosage: 56 TABLETS ONE WEEK SUPPLY
     Route: 065

REACTIONS (2)
  - Death [Fatal]
  - Disease progression [Unknown]
